FAERS Safety Report 5063681-8 (Version None)
Quarter: 2006Q3

REPORT INFORMATION
  Report Type: 
  Country: None (occurrence: None)
  Receive Date: 20060727
  Receipt Date: 20060407
  Transmission Date: 20061208
  Serious: No
  Sender: FDA-Public Use
  Company Number: US-GLAXOSMITHKLINE-A0600924A

PATIENT

DRUGS (2)
  1. LEXIVA [Suspect]
     Indication: HIV INFECTION
     Dosage: 700MG THREE TIMES PER DAY
     Route: 048
  2. FORTOVASE [Concomitant]
     Dosage: 800MG THREE TIMES PER DAY

REACTIONS (1)
  - DRUG LEVEL INCREASED [None]
